FAERS Safety Report 13693929 (Version 1)
Quarter: 2017Q2

REPORT INFORMATION
  Report Type: Spontaneous
  Country: US (occurrence: US)
  Receive Date: 20170626
  Receipt Date: 20170626
  Transmission Date: 20170830
  Serious: Yes (Hospitalization, Disabling)
  Sender: FDA-Public Use
  Company Number: None

PATIENT
  Age: 47 Year
  Sex: Female
  Weight: 51.75 kg

DRUGS (8)
  1. CLONAZEPAM. [Suspect]
     Active Substance: CLONAZEPAM
     Indication: ANXIETY
  2. CLONAZEPAM. [Suspect]
     Active Substance: CLONAZEPAM
     Indication: INSOMNIA
  3. GABAPENTIN. [Concomitant]
     Active Substance: GABAPENTIN
  4. ATENOLOL. [Concomitant]
     Active Substance: ATENOLOL
  5. VISTERAL [Concomitant]
  6. LEVOTHYROXINE. [Concomitant]
     Active Substance: LEVOTHYROXINE
  7. TRYPTOPHAN [Concomitant]
     Active Substance: TRYPTOPHAN
  8. ESTROGEN [Concomitant]
     Active Substance: ESTROGENS

REACTIONS (18)
  - Alopecia [None]
  - Decreased activity [None]
  - Temperature intolerance [None]
  - Fall [None]
  - Vision blurred [None]
  - Tremor [None]
  - Back pain [None]
  - Impaired work ability [None]
  - Hypopnoea [None]
  - Agitation [None]
  - Quality of life decreased [None]
  - Drug use disorder [None]
  - Weight decreased [None]
  - Food intolerance [None]
  - Muscular weakness [None]
  - Palpitations [None]
  - Drug tolerance [None]
  - Burning sensation [None]

NARRATIVE: CASE EVENT DATE: 20160203
